FAERS Safety Report 7085507-3 (Version None)
Quarter: 2010Q4

REPORT INFORMATION
  Report Type: 
  Country: None (occurrence: None)
  Receive Date: 20101028
  Receipt Date: 20101018
  Transmission Date: 20110411
  Serious: Yes (Hospitalization)
  Sender: FDA-Public Use
  Company Number: 1000016973

PATIENT
  Age: 72 Year
  Sex: Female

DRUGS (4)
  1. MEMANTINE HCL [Suspect]
     Dosage: 15 MG (15 MG, 1 IN 1 D)
     Dates: start: 20100615, end: 20100615
  2. IRBESARTAN [Concomitant]
  3. CITICOLINE (CITICOLINE) (CITICOLINE) [Concomitant]
  4. ACETYLSALICYLIC ACID SRT [Concomitant]

REACTIONS (1)
  - EPILEPSY [None]
